FAERS Safety Report 14641911 (Version 1)
Quarter: 2018Q1

REPORT INFORMATION
  Report Type: Spontaneous
  Country: US (occurrence: US)
  Receive Date: 20180315
  Receipt Date: 20180315
  Transmission Date: 20180509
  Serious: Yes (Disabling)
  Sender: FDA-Public Use
  Company Number: None

PATIENT
  Age: 62 Year
  Sex: Female
  Weight: 76.5 kg

DRUGS (13)
  1. ALLEGRA [Concomitant]
     Active Substance: FEXOFENADINE HYDROCHLORIDE
  2. PROTONIX [Concomitant]
     Active Substance: PANTOPRAZOLE SODIUM
  3. CRESTOR [Concomitant]
     Active Substance: ROSUVASTATIN CALCIUM
  4. SYNTHROID [Concomitant]
     Active Substance: LEVOTHYROXINE SODIUM
  5. RESTASIS [Concomitant]
     Active Substance: CYCLOSPORINE
  6. KLONOPIN [Concomitant]
     Active Substance: CLONAZEPAM
  7. STOOL SOFTENER (DOCUSATE) [Concomitant]
     Active Substance: DOCUSATE
  8. MVI WITHOUT IRON [Concomitant]
  9. ZANTAC [Concomitant]
     Active Substance: RANITIDINE HYDROCHLORIDE
  10. BABY ASA [Concomitant]
     Active Substance: ASPIRIN
  11. VIT D-3 [Concomitant]
  12. FISH OIL [Concomitant]
     Active Substance: FISH OIL
  13. ELMIRON [Suspect]
     Active Substance: PENTOSAN POLYSULFATE SODIUM
     Indication: CYSTITIS INTERSTITIAL
     Dosage: ?          QUANTITY:1 CAPSULE(S);?
     Route: 048
     Dates: start: 20180220, end: 20180314

REACTIONS (8)
  - Drug interaction [None]
  - Crying [None]
  - Bladder pain [None]
  - Depression [None]
  - Suicidal ideation [None]
  - Blood thyroid stimulating hormone decreased [None]
  - Anger [None]
  - Irritability [None]

NARRATIVE: CASE EVENT DATE: 20180313
